FAERS Safety Report 12674043 (Version 1)
Quarter: 2016Q3

REPORT INFORMATION
  Report Type: Spontaneous
  Country: BR (occurrence: BR)
  Receive Date: 20160822
  Receipt Date: 20160822
  Transmission Date: 20161109
  Serious: Yes (Death)
  Sender: FDA-Public Use
  Company Number: BR-SLOAN PHARMA-USW201608-000571

PATIENT
  Age: 100 Year
  Sex: Female
  Weight: 72 kg

DRUGS (1)
  1. TEGASEROD [Suspect]
     Active Substance: TEGASEROD
     Indication: PRODUCT USED FOR UNKNOWN INDICATION

REACTIONS (1)
  - Multiple organ dysfunction syndrome [Fatal]

NARRATIVE: CASE EVENT DATE: 20110804
